FAERS Safety Report 15956483 (Version 1)
Quarter: 2019Q1

REPORT INFORMATION
  Report Type: Spontaneous
  Country: US (occurrence: US)
  Receive Date: 20190213
  Receipt Date: 20190213
  Transmission Date: 20190417
  Serious: Yes (Hospitalization, Other)
  Sender: FDA-Public Use
  Company Number: US-009507513-1902USA003133

PATIENT
  Sex: Male

DRUGS (2)
  1. KEYTRUDA [Suspect]
     Active Substance: PEMBROLIZUMAB
     Indication: NON-SMALL CELL LUNG CANCER METASTATIC
     Dosage: UNK
     Route: 042
  2. EMEND [Concomitant]
     Active Substance: APREPITANT
     Dosage: UNK

REACTIONS (10)
  - Gait inability [Recovered/Resolved]
  - Confusional state [Recovered/Resolved]
  - Vomiting [Recovered/Resolved]
  - Encephalopathy [Recovered/Resolved]
  - Nausea [Recovered/Resolved]
  - Malignant neoplasm progression [Unknown]
  - Hypophysitis [Recovered/Resolved]
  - Hypotension [Recovered/Resolved]
  - Amnesia [Recovered/Resolved]
  - Asthenia [Recovered/Resolved]
